FAERS Safety Report 11754577 (Version 2)
Quarter: 2016Q1

REPORT INFORMATION
  Report Type: Spontaneous
  Country: AU (occurrence: AU)
  Receive Date: 20151119
  Receipt Date: 20160128
  Transmission Date: 20160525
  Serious: Yes (Other)
  Sender: FDA-Public Use
  Company Number: AU-PFIZER INC-2015389795

PATIENT
  Age: 50 Year
  Sex: Male

DRUGS (4)
  1. LYRICA [Suspect]
     Active Substance: PREGABALIN
     Dosage: 150 MG, 2X/DAY
  2. TRAMADOL. [Concomitant]
     Active Substance: TRAMADOL
  3. LYRICA [Suspect]
     Active Substance: PREGABALIN
     Indication: RADICULAR PAIN
     Dosage: UNK
     Dates: start: 2012
  4. LYRICA [Suspect]
     Active Substance: PREGABALIN
     Indication: BACK PAIN
     Dosage: 75 MG, 2X/DAY

REACTIONS (1)
  - Suicide attempt [Recovered/Resolved]
